FAERS Safety Report 17186169 (Version 3)
Quarter: 2020Q1

REPORT INFORMATION
  Report Type: Spontaneous
  Country: US (occurrence: US)
  Receive Date: 20191220
  Receipt Date: 20200106
  Transmission Date: 20200409
  Serious: Yes (Hospitalization, Other)
  Sender: FDA-Public Use
  Company Number: US-BOIRON INC.-2019BOR00152

PATIENT
  Age: 61 Year
  Sex: Male
  Weight: 99.77 kg

DRUGS (6)
  1. ARNICA MONTANA. [Suspect]
     Active Substance: HOMEOPATHICS
     Indication: BONE DISORDER
     Dosage: 1 TABLETS, AS NEEDED ^BUT NOT MUCH^
     Route: 048
     Dates: start: 1992
  2. ARNICARE ARTHRITIS [Suspect]
     Active Substance: HOMEOPATHICS
     Indication: MYALGIA
  3. ARNICA MONTANA. [Suspect]
     Active Substance: HOMEOPATHICS
     Indication: ARTHROPATHY
     Dosage: 1 TABLETS, AS NEEDED ^BUT NOT MUCH^
     Route: 048
  4. ARNICARE ARTHRITIS [Suspect]
     Active Substance: HOMEOPATHICS
     Indication: ARTHROPATHY
     Dosage: UNK
  5. ARNICA MONTANA. [Suspect]
     Active Substance: HOMEOPATHICS
     Indication: MYALGIA
  6. FENTANYL TRANSDERMAL SYSTEM [Concomitant]
     Active Substance: FENTANYL

REACTIONS (14)
  - Neck surgery [Recovered/Resolved]
  - Bed rest [Not Recovered/Not Resolved]
  - Head injury [Unknown]
  - Nerve compression [Unknown]
  - Muscle spasms [Not Recovered/Not Resolved]
  - Cerebrospinal fluid circulation disorder [Recovered/Resolved]
  - Neck injury [Unknown]
  - Muscle tightness [Unknown]
  - Hemiplegia [Unknown]
  - Cervical vertebral fracture [Recovered/Resolved]
  - Accident [Recovered/Resolved]
  - Product administration error [Recovered/Resolved]
  - Road traffic accident [Recovered/Resolved]
  - Fatigue [Unknown]

NARRATIVE: CASE EVENT DATE: 1995
